FAERS Safety Report 25008769 (Version 1)
Quarter: 2025Q1

REPORT INFORMATION
  Report Type: Spontaneous
  Country: GB (occurrence: GB)
  Receive Date: 20250225
  Receipt Date: 20250225
  Transmission Date: 20250409
  Serious: Yes (Life-Threatening, Hospitalization, Other)
  Sender: B BRAUN
  Company Number: GB-B.Braun Medical Inc.-2171776

PATIENT
  Age: 89 Year
  Sex: Male
  Weight: 61 kg

DRUGS (1)
  1. ACETAMINOPHEN [Suspect]
     Active Substance: ACETAMINOPHEN

REACTIONS (1)
  - Cardiac failure [Not Recovered/Not Resolved]
